FAERS Safety Report 18069208 (Version 16)
Quarter: 2020Q4

REPORT INFORMATION
  Report Type: Spontaneous
  Country: US (occurrence: US)
  Receive Date: 20200725
  Receipt Date: 20201006
  Transmission Date: 20210113
  Serious: Yes (Hospitalization, Other)
  Sender: FDA-Public Use
  Company Number: US-UNITED THERAPEUTICS-UNT-2020-010761

PATIENT
  Age: 52 Year
  Sex: Female
  Weight: 86.17 kg

DRUGS (12)
  1. TYVASO [Suspect]
     Active Substance: TREPROSTINIL
     Dosage: UNK
  2. LETAIRIS [Suspect]
     Active Substance: AMBRISENTAN
     Indication: PRODUCT USED FOR UNKNOWN INDICATION
     Dosage: 10 MG, UNK
     Route: 065
  3. NYSTATIN. [Suspect]
     Active Substance: NYSTATIN
     Indication: ORAL CANDIDIASIS
     Dosage: UNK
     Route: 065
  4. TYVASO [Suspect]
     Active Substance: TREPROSTINIL
     Dosage: 18 ?G, UNK
  5. TYVASO [Suspect]
     Active Substance: TREPROSTINIL
     Dosage: UNK
  6. METRONIDAZOLE. [Suspect]
     Active Substance: METRONIDAZOLE
     Indication: PRODUCT USED FOR UNKNOWN INDICATION
     Dosage: UNK
     Route: 065
  7. DIFLUCAN [Suspect]
     Active Substance: FLUCONAZOLE
     Indication: CANDIDA INFECTION
     Dosage: UNK
     Route: 065
  8. TYVASO [Suspect]
     Active Substance: TREPROSTINIL
     Dosage: 18-54 ?G, QID
  9. AMOXICILLIN. [Suspect]
     Active Substance: AMOXICILLIN
     Indication: PRODUCT USED FOR UNKNOWN INDICATION
     Dosage: UNK, (ONE DOSE)
     Route: 065
     Dates: start: 202008
  10. TYVASO [Suspect]
     Active Substance: TREPROSTINIL
     Dosage: 54 ?G, QID
  11. REVATIO [Suspect]
     Active Substance: SILDENAFIL CITRATE
     Indication: PRODUCT USED FOR UNKNOWN INDICATION
     Dosage: UNK
     Route: 065
  12. TYVASO [Suspect]
     Active Substance: TREPROSTINIL
     Indication: PULMONARY ARTERIAL HYPERTENSION
     Dosage: UNK
     Dates: start: 20110920

REACTIONS (31)
  - Gingival pain [Unknown]
  - Facial pain [Unknown]
  - Salivary hypersecretion [Unknown]
  - Paranasal sinus hypersecretion [Unknown]
  - Blood pressure increased [Unknown]
  - Secretion discharge [Unknown]
  - Abscess [Unknown]
  - Headache [Not Recovered/Not Resolved]
  - Bronchospasm [Unknown]
  - Respiratory tract congestion [Unknown]
  - Tooth infection [Unknown]
  - Device use error [Unknown]
  - Pharyngeal swelling [Unknown]
  - Oropharyngeal pain [Unknown]
  - Drug hypersensitivity [Unknown]
  - Tonsillar hypertrophy [Unknown]
  - Neck pain [Unknown]
  - Product dose omission issue [Unknown]
  - Fungal infection [Unknown]
  - Pharyngitis streptococcal [Unknown]
  - Oral candidiasis [Unknown]
  - Nasal congestion [Unknown]
  - Toothache [Unknown]
  - Feeling hot [Unknown]
  - Malaise [Unknown]
  - Eye pain [Unknown]
  - Eye swelling [Not Recovered/Not Resolved]
  - Rhinorrhoea [Unknown]
  - Gastrooesophageal reflux disease [Unknown]
  - Throat tightness [Unknown]
  - Paranasal sinus discomfort [Unknown]

NARRATIVE: CASE EVENT DATE: 20200719
